FAERS Safety Report 10775633 (Version 1)
Quarter: 2015Q1

REPORT INFORMATION
  Report Type: Spontaneous
  Country: US (occurrence: US)
  Receive Date: 20150209
  Receipt Date: 20150209
  Transmission Date: 20150721
  Serious: No
  Sender: FDA-Public Use
  Company Number: US-TEVA-539174USA

PATIENT
  Sex: Female

DRUGS (1)
  1. COPAXONE [Suspect]
     Active Substance: GLATIRAMER ACETATE
     Indication: MULTIPLE SCLEROSIS
     Dosage: DOSE AND FREQUENCY NOT PROVIDED

REACTIONS (8)
  - Malaise [Unknown]
  - Feeling abnormal [Unknown]
  - Paraesthesia [Unknown]
  - Energy increased [Unknown]
  - Burning sensation [Unknown]
  - Nausea [Unknown]
  - Epigastric discomfort [Unknown]
  - Fatigue [Unknown]
